FAERS Safety Report 6478111 (Version 2)
Quarter: 2013Q3

REPORT INFORMATION
  Report Type: Spontaneous
  Country: US (occurrence: None)
  Receive Date: 20071116
  Receipt Date: 20130801
  Transmission Date: 20140515
  Serious: Yes (Death)
  Sender: FDA-Public Use
  Company Number: 20070290

PATIENT
  Age: 47 Year
  Sex: Male
  Weight: 90.72 kg

DRUGS (1)
  1. VENOFER [Suspect]
     Indication: ANAEMIA
     Dosage: 100 MG DAILY, INTRAVENOUS
     Route: 042
     Dates: start: 20060107, end: 20060108

REACTIONS (4)
  - Hyperhidrosis [None]
  - Cerebrovascular accident [None]
  - Loss of consciousness [None]
  - Pyrexia [None]
